FAERS Safety Report 9641369 (Version 1)
Quarter: 2013Q4

REPORT INFORMATION
  Report Type: Report from Study
  Country: US (occurrence: US)
  Receive Date: 20131023
  Receipt Date: 20131023
  Transmission Date: 20140711
  Serious: No
  Sender: FDA-Public Use
  Company Number: US-ABBVIE-13P-163-1066539-00

PATIENT
  Age: 39 Year
  Sex: Female
  Weight: 62.65 kg

DRUGS (4)
  1. LUPRON DEPOT [Suspect]
     Indication: ENDOMETRIOSIS
     Dates: start: 20130122, end: 20130222
  2. LINZESS [Concomitant]
     Indication: CONSTIPATION
  3. CYMBALTA [Concomitant]
     Indication: DEPRESSION
  4. ELAVIL [Concomitant]
     Indication: DEPRESSION

REACTIONS (5)
  - Blood testosterone decreased [Not Recovered/Not Resolved]
  - Hot flush [Not Recovered/Not Resolved]
  - Insomnia [Not Recovered/Not Resolved]
  - Malaise [Not Recovered/Not Resolved]
  - Endometriosis [Not Recovered/Not Resolved]
